FAERS Safety Report 9197215 (Version 1)
Quarter: 2013Q1

REPORT INFORMATION
  Report Type: Spontaneous
  Country: FR (occurrence: FR)
  Receive Date: 20130328
  Receipt Date: 20130328
  Transmission Date: 20140127
  Serious: Yes (Death, Hospitalization)
  Sender: FDA-Public Use
  Company Number: FR-ROCHE-1207161

PATIENT
  Age: 85 Year
  Sex: Female

DRUGS (3)
  1. XELODA [Suspect]
     Indication: CHEMOTHERAPY
     Route: 048
     Dates: start: 20130123, end: 20130211
  2. CORTANCYL [Concomitant]
     Route: 048
  3. DOLIPRANE [Concomitant]
     Route: 048

REACTIONS (3)
  - Rash [Fatal]
  - Dermatitis bullous [Fatal]
  - Oedema peripheral [Fatal]
